FAERS Safety Report 7218132-1 (Version None)
Quarter: 2011Q1

REPORT INFORMATION
  Report Type: 
  Country: None (occurrence: None)
  Receive Date: 20110110
  Receipt Date: 20101221
  Transmission Date: 20110831
  Serious: Yes (Congenital Anomaly)
  Sender: FDA-Public Use
  Company Number: GB-PFIZER INC-2011004520

PATIENT

DRUGS (2)
  1. IBUPROFEN [Suspect]
     Dosage: UNK
     Route: 064
  2. PARACETAMOL [Suspect]
     Dosage: 12.5 G, UNK
     Route: 064

REACTIONS (2)
  - DRUG EXPOSURE DURING PREGNANCY [None]
  - PALATAL DISORDER [None]
